FAERS Safety Report 4648916-5 (Version None)
Quarter: 2005Q2

REPORT INFORMATION
  Report Type: 
  Country: None (occurrence: None)
  Receive Date: 20050427
  Receipt Date: 20050418
  Transmission Date: 20051028
  Serious: Yes (Hospitalization)
  Sender: FDA-Public Use
  Company Number: IBF20050017

PATIENT
  Age: 17 Year
  Sex: Male

DRUGS (4)
  1. IBUPROFEN [Suspect]
     Indication: INFLAMMATION
     Dosage: 1000 MG BID PO
     Route: 048
     Dates: start: 20040101, end: 20040101
  2. ANTIBIOTICS [Concomitant]
  3. VITAMINS [Concomitant]
  4. PANCREATIC ENZYME [Concomitant]

REACTIONS (6)
  - ABDOMINAL PAIN [None]
  - DEFORMITY [None]
  - HAEMATEMESIS [None]
  - OESOPHAGEAL DISORDER [None]
  - OESOPHAGEAL ULCER HAEMORRHAGE [None]
  - RECTAL HAEMORRHAGE [None]
